FAERS Safety Report 7525323-9 (Version None)
Quarter: 2011Q2

REPORT INFORMATION
  Report Type: 
  Country: None (occurrence: None)
  Receive Date: 20110606
  Receipt Date: 20110527
  Transmission Date: 20111010
  Serious: Yes (Other)
  Sender: FDA-Public Use
  Company Number: JP-PFIZER INC-2011120937

PATIENT
  Age: 85 Year
  Sex: Female

DRUGS (2)
  1. MIDAZOLAM HYDROCHLORIDE [Suspect]
     Dosage: UNK
  2. LIPITOR [Suspect]
     Dosage: UNK
     Route: 048

REACTIONS (2)
  - NEUROLEPTIC MALIGNANT SYNDROME [None]
  - RHABDOMYOLYSIS [None]
